FAERS Safety Report 5042558-8 (Version None)
Quarter: 2006Q3

REPORT INFORMATION
  Report Type: 
  Country: None (occurrence: None)
  Receive Date: 20060705
  Receipt Date: 20060621
  Transmission Date: 20061208
  Serious: Yes (Hospitalization, Other)
  Sender: FDA-Public Use
  Company Number: US-BRISTOL-MYERS SQUIBB COMPANY-13419916

PATIENT
  Age: 12 Year
  Sex: Female
  Weight: 42 kg

DRUGS (3)
  1. VIDEX [Suspect]
  2. KALETRA [Suspect]
  3. VIREAD [Suspect]

REACTIONS (3)
  - FANCONI SYNDROME ACQUIRED [None]
  - NEPHROGENIC DIABETES INSIPIDUS [None]
  - RENAL FAILURE [None]
